FAERS Safety Report 14218125 (Version 1)
Quarter: 2017Q4

REPORT INFORMATION
  Report Type: Spontaneous
  Country: US (occurrence: US)
  Receive Date: 20171123
  Receipt Date: 20171123
  Transmission Date: 20180321
  Serious: No
  Sender: FDA-Public Use
  Company Number: US-ASTRAZENECA-2017SF16306

PATIENT
  Age: 31 Year
  Sex: Female

DRUGS (3)
  1. ABILIFY [Suspect]
     Active Substance: ARIPIPRAZOLE
     Indication: BIPOLAR DISORDER
     Dosage: 20.0MG UNKNOWN
     Route: 065
  2. LAMICTAL [Suspect]
     Active Substance: LAMOTRIGINE
     Indication: BIPOLAR DISORDER
     Route: 065
  3. SEROQUEL [Suspect]
     Active Substance: QUETIAPINE FUMARATE
     Indication: BIPOLAR DISORDER
     Dosage: 100.0MG UNKNOWN
     Route: 048

REACTIONS (6)
  - Prescribed overdose [Unknown]
  - Induced labour [Unknown]
  - Live birth [Unknown]
  - Anaemia of pregnancy [Unknown]
  - Maternal exposure during pregnancy [Unknown]
  - Product use issue [Unknown]

NARRATIVE: CASE EVENT DATE: 20090921
